FAERS Safety Report 19383261 (Version 1)
Quarter: 2021Q2

REPORT INFORMATION
  Report Type: Spontaneous
  Country: US (occurrence: US)
  Receive Date: 20210608
  Receipt Date: 20210608
  Transmission Date: 20210717
  Serious: Yes (Death, Other)
  Sender: FDA-Public Use
  Company Number: US-B.I. PHARMACEUTICALS,INC./RIDGEFIELD-2021-BI-108161

PATIENT
  Age: 73 Year

DRUGS (1)
  1. OFEV [Suspect]
     Active Substance: NINTEDANIB
     Indication: PULMONARY FIBROSIS
     Dosage: 150MG TWICE DAILY
     Route: 065
     Dates: start: 202103, end: 20210525

REACTIONS (2)
  - Pulmonary fibrosis [Fatal]
  - Throat cancer [Fatal]

NARRATIVE: CASE EVENT DATE: 202103
